FAERS Safety Report 6766672-1 (Version None)
Quarter: 2010Q2

REPORT INFORMATION
  Report Type: 
  Country: None (occurrence: None)
  Receive Date: 20100611
  Receipt Date: 20100430
  Transmission Date: 20101027
  Serious: Yes (Death, Other)
  Sender: FDA-Public Use
  Company Number: US-BAXTER-2009BH019828

PATIENT
  Age: 70 Year
  Sex: Male

DRUGS (39)
  1. HEPARIN SODIUM [Suspect]
     Indication: THROMBOLYSIS
     Route: 042
     Dates: start: 20071203, end: 20071203
  2. HEPARIN SODIUM [Suspect]
     Indication: ANGIOGRAM
     Route: 042
     Dates: start: 20071203, end: 20071203
  3. HEPARIN SODIUM 5,000 UNITS IN DEXTROSE 5% [Suspect]
     Indication: THROMBOLYSIS
     Route: 041
     Dates: start: 20071203, end: 20071204
  4. HEPARIN SODIUM 5,000 UNITS IN DEXTROSE 5% [Suspect]
     Route: 041
     Dates: start: 20071204, end: 20071204
  5. TISSUE PLASMINOGEN ACTIVATOR IN NORMAL SALINE [Suspect]
     Indication: THROMBOLYSIS
     Route: 065
     Dates: start: 20071203, end: 20071203
  6. TISSUE PLASMINOGEN ACTIVATOR IN NORMAL SALINE [Suspect]
     Route: 042
     Dates: start: 20071203, end: 20071204
  7. COREG [Concomitant]
     Indication: DRUG USE FOR UNKNOWN INDICATION
     Route: 065
  8. DETROL [Concomitant]
     Indication: DRUG USE FOR UNKNOWN INDICATION
     Route: 065
  9. DIOVAN [Concomitant]
     Indication: DRUG USE FOR UNKNOWN INDICATION
     Route: 065
  10. FLOMAX [Concomitant]
     Indication: DRUG USE FOR UNKNOWN INDICATION
     Route: 065
  11. FUROSEMIDE [Concomitant]
     Indication: DRUG USE FOR UNKNOWN INDICATION
     Route: 065
  12. LIPITOR [Concomitant]
     Indication: DRUG USE FOR UNKNOWN INDICATION
     Route: 065
  13. LISINOPRIL [Concomitant]
     Indication: DRUG USE FOR UNKNOWN INDICATION
     Route: 065
  14. ENABLEX [Concomitant]
     Indication: DRUG USE FOR UNKNOWN INDICATION
     Route: 065
  15. JANVENT [Concomitant]
     Indication: DRUG USE FOR UNKNOWN INDICATION
     Route: 065
  16. PLAVIX [Concomitant]
     Indication: DRUG USE FOR UNKNOWN INDICATION
     Route: 065
  17. ASPIRIN [Concomitant]
     Indication: DRUG USE FOR UNKNOWN INDICATION
     Route: 065
  18. SOLU-MEDROL [Concomitant]
     Indication: DRUG USE FOR UNKNOWN INDICATION
     Route: 065
  19. ISOSORBIDE [Concomitant]
     Indication: DRUG USE FOR UNKNOWN INDICATION
     Route: 065
  20. COLACE [Concomitant]
     Indication: DRUG USE FOR UNKNOWN INDICATION
     Route: 065
  21. LIPITOR [Concomitant]
     Route: 065
  22. PROTONIX [Concomitant]
     Indication: DRUG USE FOR UNKNOWN INDICATION
     Route: 065
  23. FLUCONAZOLE [Concomitant]
     Indication: DRUG USE FOR UNKNOWN INDICATION
     Route: 065
  24. PROCRIT [Concomitant]
     Indication: DRUG USE FOR UNKNOWN INDICATION
     Route: 065
  25. LOVENOX [Concomitant]
     Indication: DRUG USE FOR UNKNOWN INDICATION
     Route: 065
  26. COREG [Concomitant]
     Route: 065
  27. LANTUS [Concomitant]
     Indication: DRUG USE FOR UNKNOWN INDICATION
     Route: 065
  28. HYDRALAZINE HCL [Concomitant]
     Indication: DRUG USE FOR UNKNOWN INDICATION
     Route: 065
  29. ASPIRINE [Concomitant]
     Indication: THROMBOLYSIS
     Route: 048
  30. FENTANYL [Concomitant]
     Indication: THROMBOLYSIS
     Route: 042
  31. FENTANYL [Concomitant]
     Indication: ARTERIOGRAM
     Route: 042
  32. VERSED [Concomitant]
     Indication: THROMBOLYSIS
     Route: 042
  33. VERSED [Concomitant]
     Indication: ARTERIOGRAM
     Route: 042
  34. MAGNESIUM [Concomitant]
     Indication: ARTERIOGRAM
     Route: 042
  35. VANCOMYCIN [Concomitant]
     Indication: ARTERIOGRAM
     Route: 042
  36. NORMAL SALINE [Concomitant]
     Indication: ARTERIOGRAM
     Route: 042
  37. 5% DEXTROSE INJECTION [Concomitant]
     Indication: DRUG USE FOR UNKNOWN INDICATION
     Route: 042
  38. MORPHINE [Concomitant]
     Indication: ARTERIOGRAM
     Route: 042
  39. PLAVIX [Concomitant]
     Indication: ARTERIOGRAM
     Route: 048

REACTIONS (19)
  - ACIDOSIS [None]
  - ACUTE MYOCARDIAL INFARCTION [None]
  - ASTHENIA [None]
  - BRAIN HYPOXIA [None]
  - DIARRHOEA [None]
  - DISSEMINATED INTRAVASCULAR COAGULATION [None]
  - GASTROINTESTINAL HAEMORRHAGE [None]
  - HAEMATURIA [None]
  - HAEMORRHAGE [None]
  - HYPOTENSION [None]
  - MENTAL STATUS CHANGES [None]
  - NECROSIS ISCHAEMIC [None]
  - PERIPHERAL VASCULAR DISORDER [None]
  - PNEUMONIA [None]
  - RENAL FAILURE ACUTE [None]
  - RESPIRATORY FAILURE [None]
  - RHABDOMYOLYSIS [None]
  - SEPSIS [None]
  - UNRESPONSIVE TO STIMULI [None]
